FAERS Safety Report 19676324 (Version 1)
Quarter: 2021Q3

REPORT INFORMATION
  Report Type: Spontaneous
  Country: GR (occurrence: GR)
  Receive Date: 20210809
  Receipt Date: 20210809
  Transmission Date: 20211014
  Serious: Yes (Hospitalization, Other)
  Sender: FDA-Public Use
  Company Number: GR-ADVANZ PHARMA-202107005432

PATIENT

DRUGS (12)
  1. PREDNISOLONE. [Suspect]
     Active Substance: PREDNISOLONE
     Indication: COLITIS ULCERATIVE
     Dosage: UNK
  2. ISONIAZID. [Suspect]
     Active Substance: ISONIAZID
     Indication: CHRONIC RESPIRATORY FAILURE
  3. PREDNISOLONE. [Suspect]
     Active Substance: PREDNISOLONE
     Indication: CHRONIC RESPIRATORY FAILURE
  4. MESALAZINE [Suspect]
     Active Substance: MESALAMINE
     Indication: CHRONIC RESPIRATORY FAILURE
  5. MESALAZINE [Suspect]
     Active Substance: MESALAMINE
     Indication: COLITIS ULCERATIVE
     Dosage: UNK
  6. FLUTICASONE / VILANDEROL [Suspect]
     Active Substance: FLUTICASONE FUROATE\VILANTEROL TRIFENATATE
     Indication: CHRONIC RESPIRATORY FAILURE
     Dosage: UNK
  7. ISONIAZID. [Suspect]
     Active Substance: ISONIAZID
     Indication: COLITIS ULCERATIVE
  8. VEDOLIZUMAB [Concomitant]
     Active Substance: VEDOLIZUMAB
     Indication: COLITIS ULCERATIVE
     Dosage: UNK
  9. CEFTRIAXONE. [Concomitant]
     Active Substance: CEFTRIAXONE
     Indication: INFECTION PROPHYLAXIS
     Dosage: UNK
  10. AZITHROMYCIN ANHYDROUS. [Concomitant]
     Active Substance: AZITHROMYCIN ANHYDROUS
     Indication: INFECTION PROPHYLAXIS
     Dosage: UNK
  11. ISONIAZID. [Suspect]
     Active Substance: ISONIAZID
     Indication: LATENT TUBERCULOSIS
     Dosage: UNK
  12. FLUTICASONE / VILANDEROL [Suspect]
     Active Substance: FLUTICASONE FUROATE\VILANTEROL TRIFENATATE
     Indication: COLITIS ULCERATIVE

REACTIONS (1)
  - Nocardiosis [Recovered/Resolved]
